FAERS Safety Report 7095876-6 (Version None)
Quarter: 2010Q4

REPORT INFORMATION
  Report Type: 
  Country: None (occurrence: None)
  Receive Date: 20101111
  Receipt Date: 20101102
  Transmission Date: 20110411
  Serious: Yes (Hospitalization)
  Sender: FDA-Public Use
  Company Number: US-ASTRAZENECA-2010SE51978

PATIENT
  Age: 83 Year
  Sex: Female
  Weight: 71.2 kg

DRUGS (5)
  1. CRESTOR [Suspect]
     Indication: HYPERCHOLESTEROLAEMIA
     Route: 048
     Dates: start: 20090101
  2. ASPIRIN [Concomitant]
  3. NITROGLYCERIN [Concomitant]
  4. ANTIBIOTIC [Concomitant]
     Indication: URINARY TRACT INFECTION
  5. HIGH BLOOD PRESSURE MEDICATION [Concomitant]

REACTIONS (7)
  - BACK PAIN [None]
  - DRUG DOSE OMISSION [None]
  - FEELING COLD [None]
  - HYPERTENSION [None]
  - PAIN IN EXTREMITY [None]
  - TREMOR [None]
  - URINARY TRACT INFECTION [None]
